FAERS Safety Report 11604186 (Version 1)
Quarter: 2015Q4

REPORT INFORMATION
  Report Type: Report from Study
  Country: BR (occurrence: BR)
  Receive Date: 20151007
  Receipt Date: 20151007
  Transmission Date: 20160304
  Serious: Yes (Hospitalization, Other)
  Sender: FDA-Public Use
  Company Number: BR-ROCHE-1466752

PATIENT
  Age: 44 Year
  Sex: Male
  Weight: 53 kg

DRUGS (6)
  1. TRIAMCINOLONE [Concomitant]
     Active Substance: TRIAMCINOLONE
     Route: 065
  2. ACTEMRA [Suspect]
     Active Substance: TOCILIZUMAB
     Indication: RHEUMATOID ARTHRITIS
     Route: 042
     Dates: start: 20140404
  3. LEVOTHYROXINE. [Concomitant]
     Active Substance: LEVOTHYROXINE
     Route: 065
  4. NOVALGIN [Concomitant]
     Active Substance: METAMIZOLE SODIUM
  5. AVALOX [Concomitant]
     Active Substance: MOXIFLOXACIN HYDROCHLORIDE
  6. ACETAMINOPHEN. [Concomitant]
     Active Substance: ACETAMINOPHEN

REACTIONS (8)
  - Pneumonia [Not Recovered/Not Resolved]
  - Lung disorder [Unknown]
  - Pleural disorder [Unknown]
  - Blood glucose abnormal [Not Recovered/Not Resolved]
  - Pancreatic mass [Unknown]
  - Blood pressure abnormal [Not Recovered/Not Resolved]
  - Respiratory failure [Unknown]
  - Weight decreased [Recovered/Resolved]

NARRATIVE: CASE EVENT DATE: 201408
